FAERS Safety Report 7203350-9 (Version None)
Quarter: 2010Q4

REPORT INFORMATION
  Report Type: 
  Country: None (occurrence: None)
  Receive Date: 20101215
  Receipt Date: 20101201
  Transmission Date: 20110411
  Serious: Yes (Hospitalization)
  Sender: FDA-Public Use
  Company Number: MPS1-1000342

PATIENT
  Age: 4 Year
  Sex: Female
  Weight: 15 kg

DRUGS (8)
  1. ALDURAZYME (LARONIDASE) CONCENTRATE FOR SOLUTION FOR INFUSION [Suspect]
     Indication: MUCOPOLYSACCHARIDOSIS I
     Dates: start: 20080526, end: 20100110
  2. SALBUTAMOL (SALBUTAMOL SULFATE) [Concomitant]
  3. CLENIL (BECLOMETASONE DIPROPIONATE) [Concomitant]
  4. PHENOBARBITAL TAB [Concomitant]
  5. BACLOFEN [Concomitant]
  6. AZITHROMYCIN [Concomitant]
  7. BROMOPRIDE (BROMOPRIDE) [Concomitant]
  8. SPIRONOLACTONE [Concomitant]

REACTIONS (12)
  - ACUTE RESPIRATORY FAILURE [None]
  - AGITATION [None]
  - ANURIA [None]
  - BRONCHOSPASM [None]
  - CARDIO-RESPIRATORY ARREST [None]
  - IMPETIGO [None]
  - IRRITABILITY [None]
  - PNEUMONIA [None]
  - RASH PAPULAR [None]
  - SEPSIS [None]
  - URTICARIA [None]
  - WHEEZING [None]
